FAERS Safety Report 9771144 (Version 1)
Quarter: 2013Q4

REPORT INFORMATION
  Report Type: Spontaneous
  Country: US (occurrence: US)
  Receive Date: 20131218
  Receipt Date: 20131218
  Transmission Date: 20140711
  Serious: No
  Sender: FDA-Public Use
  Company Number: US-PFIZER INC-2013359510

PATIENT
  Age: 8 Year
  Sex: Male
  Weight: 26.76 kg

DRUGS (1)
  1. ZITHROMAX [Suspect]
     Indication: SINUSITIS
     Dosage: UNK
     Dates: start: 201304, end: 201304

REACTIONS (1)
  - Headache [Recovered/Resolved]
